FAERS Safety Report 16589477 (Version 2)
Quarter: 2019Q4

REPORT INFORMATION
  Report Type: Spontaneous
  Country: FR (occurrence: FR)
  Receive Date: 20190718
  Receipt Date: 20191119
  Transmission Date: 20200122
  Serious: Yes (Other)
  Sender: FDA-Public Use
  Company Number: FR-TAKEDA-2019TUS043624

PATIENT
  Age: 76 Year
  Sex: Female
  Weight: 76 kg

DRUGS (16)
  1. ENTYVIO [Suspect]
     Active Substance: VEDOLIZUMAB
     Indication: CROHN^S DISEASE
     Dosage: 300 MILLIGRAM
     Route: 042
     Dates: start: 20190513, end: 20190513
  2. TOVIAZ [Concomitant]
     Active Substance: FESOTERODINE FUMARATE
     Route: 048
  3. ECONAZOLE ARROW [Concomitant]
     Active Substance: ECONAZOLE
     Dosage: 1 PERCENT
     Route: 061
  4. FUROSEMIDE. [Concomitant]
     Active Substance: FUROSEMIDE
     Route: 048
  5. VENTOLINE                          /00139502/ [Concomitant]
     Active Substance: ALBUTEROL SULFATE
     Dosage: UNK
     Route: 055
  6. PANTOPRAZOLE [Concomitant]
     Active Substance: PANTOPRAZOLE
     Route: 048
  7. BACTRIM [Concomitant]
     Active Substance: SULFAMETHOXAZOLE\TRIMETHOPRIM
     Route: 048
     Dates: start: 2014
  8. PRAVASTATINE [Concomitant]
     Active Substance: PRAVASTATIN
     Route: 048
  9. TROPHICREME [Concomitant]
     Active Substance: ESTRIOL
     Dosage: UNK UNK, QD
     Route: 067
  10. CALCIDOSE VITAMINE D [Concomitant]
     Active Substance: CALCIUM\CHOLECALCIFEROL
     Dosage: 1 DOSAGE FORM, QD
     Route: 048
  11. ISOPTINE [Concomitant]
     Active Substance: VERAPAMIL HYDROCHLORIDE
     Route: 048
  12. IRBESARTAN. [Concomitant]
     Active Substance: IRBESARTAN
     Route: 048
  13. ACIDE ALENDRONIQUE [Concomitant]
     Active Substance: ALENDRONIC ACID
     Route: 048
  14. ENTOCORT [Concomitant]
     Active Substance: BUDESONIDE
     Dosage: 3 MILLIGRAM, QD
     Route: 048
  15. PAROXETINE HCL-ANHYDRAAT A [Concomitant]
     Active Substance: PAROXETINE HYDROCHLORIDE
     Route: 048
  16. TROPHIGIL [Concomitant]
     Active Substance: ESTRIOL
     Route: 067

REACTIONS (1)
  - Dermo-hypodermitis [Recovered/Resolved]

NARRATIVE: CASE EVENT DATE: 201905
